FAERS Safety Report 7267253-6 (Version None)
Quarter: 2011Q1

REPORT INFORMATION
  Report Type: 
  Country: None (occurrence: None)
  Receive Date: 20110201
  Receipt Date: 20110127
  Transmission Date: 20110831
  Serious: Yes (Other)
  Sender: FDA-Public Use
  Company Number: JP-SANOFI-AVENTIS-200712328JP

PATIENT
  Age: 40 Year
  Sex: Female
  Weight: 48 kg

DRUGS (8)
  1. LEFLUNOMIDE [Suspect]
     Indication: RHEUMATOID ARTHRITIS
     Route: 048
     Dates: start: 20061102, end: 20061107
  2. LOXONIN [Concomitant]
     Indication: RHEUMATOID ARTHRITIS
     Dosage: DOSE AS USED: 2 TABLETS/DAY
     Route: 048
     Dates: end: 20061116
  3. FOLIAMIN [Concomitant]
     Indication: PROPHYLAXIS
     Dosage: DOSE AS USED: 1 TABLET/DAY
     Route: 048
     Dates: end: 20061026
  4. MUCOSTA [Concomitant]
     Indication: GASTRITIS PROPHYLAXIS
     Dosage: DOSE AS USED: 3 TABLETS/DAY
     Route: 048
     Dates: end: 20061116
  5. QUESTRAN [Suspect]
     Indication: DRUG DETOXIFICATION
     Route: 048
     Dates: start: 20061120, end: 20061126
  6. LEFLUNOMIDE [Suspect]
     Route: 048
     Dates: start: 20061108, end: 20061116
  7. RHEUMATREX [Concomitant]
     Indication: RHEUMATOID ARTHRITIS
     Dosage: DOSE AS USED: 8 MG/WEEK DOSE UNIT: 2 MG
     Route: 048
     Dates: end: 20061026
  8. PREDNISOLONE [Concomitant]
     Indication: RHEUMATOID ARTHRITIS
     Route: 048

REACTIONS (7)
  - WHITE BLOOD CELL COUNT DECREASED [None]
  - PYREXIA [None]
  - ALANINE AMINOTRANSFERASE INCREASED [None]
  - MALAISE [None]
  - ASPARTATE AMINOTRANSFERASE INCREASED [None]
  - RASH [None]
  - STOMATITIS [None]
